FAERS Safety Report 16123165 (Version 1)
Quarter: 2019Q1

REPORT INFORMATION
  Report Type: Spontaneous
  Country: NL (occurrence: NL)
  Receive Date: 20190327
  Receipt Date: 20190327
  Transmission Date: 20190418
  Serious: Yes (Death)
  Sender: FDA-Public Use
  Company Number: NL-NAPPMUNDI-USA-2019-0146627

PATIENT
  Age: 72 Year
  Sex: Female

DRUGS (2)
  1. MORPHINE SULFATE (SIMILAR TO NDA 19-516) [Suspect]
     Active Substance: MORPHINE SULFATE
     Indication: CENTRAL PAIN SYNDROME
     Dosage: UNK
     Route: 065
  2. OXYCODONE HYDROCHLORIDE (SIMILAR TO NDA 22-272) [Suspect]
     Active Substance: OXYCODONE HYDROCHLORIDE
     Indication: CENTRAL PAIN SYNDROME
     Dosage: UNK
     Route: 058

REACTIONS (2)
  - Malaise [Fatal]
  - Central pain syndrome [Fatal]
